FAERS Safety Report 8297388-0 (Version None)
Quarter: 2012Q2

REPORT INFORMATION
  Report Type: 
  Country: None (occurrence: None)
  Receive Date: 20120417
  Receipt Date: 20120410
  Transmission Date: 20120825
  Serious: Yes (Hospitalization)
  Sender: FDA-Public Use
  Company Number: 2012SP001713

PATIENT
  Age: 63 Year
  Sex: Female

DRUGS (9)
  1. LEVOTHYROXINE SODIUM [Concomitant]
  2. PROPRANOLOL [Concomitant]
  3. RHINOCORT [Concomitant]
  4. PERINDOPRIL [Concomitant]
  5. AUGMENTIN '125' [Suspect]
     Indication: NASOPHARYNGITIS
     Dates: start: 20111223, end: 20111230
  6. EXOMUC [Concomitant]
  7. CELESTONE [Suspect]
     Indication: NASOPHARYNGITIS
     Dosage: PO
     Route: 048
     Dates: start: 20111223, end: 20111230
  8. ACETAMINOPHEN [Concomitant]
  9. VENLAFAXINE [Concomitant]

REACTIONS (3)
  - RASH MACULO-PAPULAR [None]
  - HYPERTHERMIA [None]
  - SKIN TEST POSITIVE [None]
